FAERS Safety Report 4926131-5 (Version None)
Quarter: 2006Q1

REPORT INFORMATION
  Report Type: 
  Country: None (occurrence: None)
  Receive Date: 20060228
  Receipt Date: 20050824
  Transmission Date: 20060701
  Serious: No
  Sender: FDA-Public Use
  Company Number: US-GLAXOSMITHKLINE-A0571617A

PATIENT
  Age: 55 Year
  Sex: Female

DRUGS (12)
  1. LAMICTAL [Suspect]
     Indication: EPILEPSY
     Dosage: 350MG VARIABLE DOSE
     Route: 048
     Dates: start: 19980101
  2. TRILEPTAL [Concomitant]
  3. REGLAN [Concomitant]
  4. NORVASC [Concomitant]
  5. PREVACID [Concomitant]
  6. GLUCOVANCE [Concomitant]
  7. FOLIC ACID [Concomitant]
  8. KEPPRA [Concomitant]
  9. MULTI-VITAMIN [Concomitant]
  10. FLORINEF [Concomitant]
  11. COLACE [Concomitant]
  12. SODIUM CHLORIDE [Concomitant]

REACTIONS (2)
  - NAUSEA [None]
  - SEDATION [None]
